FAERS Safety Report 7145574-5 (Version None)
Quarter: 2010Q4

REPORT INFORMATION
  Report Type: 
  Country: None (occurrence: None)
  Receive Date: 20101124
  Receipt Date: 20101108
  Transmission Date: 20110411
  Serious: Yes (Hospitalization)
  Sender: FDA-Public Use
  Company Number: BVT-000769

PATIENT
  Age: 26 Year
  Sex: Male

DRUGS (4)
  1. ANAKINRA (BIOVITRUM AB.) [Suspect]
     Indication: CHRONIC INFANTILE NEUROLOGICAL CUTANEOUS AND ARTICULAR SYNDROME
  2. DIAMOX [Suspect]
     Indication: INTRACRANIAL PRESSURE INCREASED
  3. CALCIUM [Suspect]
     Indication: MINERAL SUPPLEMENTATION
  4. DIAMOX [Concomitant]

REACTIONS (3)
  - HYDRONEPHROSIS [None]
  - MEDICAL DEVICE PAIN [None]
  - NEPHROLITHIASIS [None]
